FAERS Safety Report 14258183 (Version 1)
Quarter: 2017Q4

REPORT INFORMATION
  Report Type: Spontaneous
  Country: IT (occurrence: IT)
  Receive Date: 20171207
  Receipt Date: 20171207
  Transmission Date: 20180321
  Serious: Yes (Other)
  Sender: FDA-Public Use
  Company Number: IT-CIPLA LTD.-2017IT21431

PATIENT

DRUGS (6)
  1. CARBOPLATIN. [Suspect]
     Active Substance: CARBOPLATIN
     Indication: OVARIAN CANCER STAGE III
     Dosage: UNK, FOR SIX CYCLES EVERY THREE WEEKS
     Route: 065
  2. TOPOTECAN [Suspect]
     Active Substance: TOPOTECAN HYDROCHLORIDE
     Indication: OVARIAN CANCER STAGE III
     Dosage: UNK, 13 CYCLES
     Route: 065
  3. PACLITAXEL. [Suspect]
     Active Substance: PACLITAXEL
     Dosage: 60 MG/M2, ONCE A WEEK
     Route: 042
  4. DOXORUBICIN [Suspect]
     Active Substance: DOXORUBICIN
     Indication: OVARIAN CANCER STAGE III
     Dosage: UNK
     Route: 065
  5. PACLITAXEL. [Suspect]
     Active Substance: PACLITAXEL
     Indication: OVARIAN CANCER STAGE III
     Dosage: UNK, SIX CYCLES EVERY THREE WEEKS
     Route: 065
  6. CARBOPLATIN. [Suspect]
     Active Substance: CARBOPLATIN
     Dosage: UNK
     Route: 065

REACTIONS (3)
  - Disease recurrence [Unknown]
  - Disease progression [Unknown]
  - Cystoid macular oedema [Recovered/Resolved]
